FAERS Safety Report 18024855 (Version 5)
Quarter: 2024Q4

REPORT INFORMATION
  Report Type: Spontaneous
  Country: US (occurrence: US)
  Receive Date: 20200715
  Receipt Date: 20241021
  Transmission Date: 20250115
  Serious: Yes (Other)
  Sender: GILEAD
  Company Number: US-GILEAD-2020-0481580

PATIENT
  Age: 55 Year
  Sex: Male

DRUGS (13)
  1. VIREAD [Suspect]
     Active Substance: TENOFOVIR DISOPROXIL FUMARATE
     Indication: HIV infection
     Dosage: UNK
     Route: 048
     Dates: start: 2001, end: 2011
  2. TRUVADA [Suspect]
     Active Substance: EMTRICITABINE\TENOFOVIR DISOPROXIL FUMARATE
     Indication: HIV infection
     Dosage: UNK
     Route: 048
     Dates: start: 2005, end: 2011
  3. TRUVADA [Suspect]
     Active Substance: EMTRICITABINE\TENOFOVIR DISOPROXIL FUMARATE
     Dosage: UNK
     Route: 048
     Dates: start: 20041011, end: 20131021
  4. TRUVADA [Suspect]
     Active Substance: EMTRICITABINE\TENOFOVIR DISOPROXIL FUMARATE
     Dosage: UNK
     Route: 048
     Dates: start: 2006, end: 20130814
  5. DESCOVY [Concomitant]
     Active Substance: EMTRICITABINE\TENOFOVIR ALAFENAMIDE FUMARATE
  6. GENVOYA [Concomitant]
     Active Substance: COBICISTAT\ELVITEGRAVIR\EMTRICITABINE\TENOFOVIR ALAFENAMIDE FUMARATE
  7. ISENTRESS [Concomitant]
     Active Substance: RALTEGRAVIR POTASSIUM
  8. ADVAIR HFA [Concomitant]
     Active Substance: FLUTICASONE PROPIONATE\SALMETEROL XINAFOATE
  9. CITALOPRAM [Concomitant]
     Active Substance: CITALOPRAM
  10. FISH OIL [Concomitant]
     Active Substance: FISH OIL
  11. GABAPENTIN [Concomitant]
     Active Substance: GABAPENTIN
  12. ASCORBIC ACID [Concomitant]
     Active Substance: ASCORBIC ACID
  13. VITAMIN B12 [Concomitant]
     Active Substance: CYANOCOBALAMIN

REACTIONS (11)
  - Chronic kidney disease [Not Recovered/Not Resolved]
  - Renal failure [Unknown]
  - Acute kidney injury [Not Recovered/Not Resolved]
  - Skeletal injury [Unknown]
  - Nephropathy [Not Recovered/Not Resolved]
  - Gait inability [Unknown]
  - Emotional distress [Unknown]
  - Anhedonia [Unknown]
  - Anxiety [Unknown]
  - Depression [Not Recovered/Not Resolved]
  - Pain [Unknown]

NARRATIVE: CASE EVENT DATE: 20100101
